FAERS Safety Report 8434351-0 (Version None)
Quarter: 2012Q2

REPORT INFORMATION
  Report Type: 
  Country: None (occurrence: None)
  Receive Date: 20120613
  Receipt Date: 20120611
  Transmission Date: 20120825
  Serious: Yes (Hospitalization)
  Sender: FDA-Public Use
  Company Number: DK-MERCK-1206USA01741

PATIENT
  Age: 37 Year
  Sex: Male

DRUGS (1)
  1. COZAAR [Suspect]
     Indication: HYPERTENSION
     Route: 048
     Dates: start: 20110628, end: 20120301

REACTIONS (6)
  - HAEMORRHAGIC DIATHESIS [None]
  - PARAESTHESIA [None]
  - HAEMATURIA [None]
  - HAEMATOMA [None]
  - PAIN [None]
  - EPISTAXIS [None]
